FAERS Safety Report 13366983 (Version 3)
Quarter: 2017Q3

REPORT INFORMATION
  Report Type: Spontaneous
  Country: US (occurrence: US)
  Receive Date: 20170324
  Receipt Date: 20170717
  Transmission Date: 20171127
  Serious: Yes (Life-Threatening, Hospitalization, Other)
  Sender: FDA-Public Use
  Company Number: US-BRISTOL-MYERS SQUIBB COMPANY-BMS-2017-024853

PATIENT
  Age: 89 Year
  Sex: Female

DRUGS (1)
  1. APIXABAN [Suspect]
     Active Substance: APIXABAN
     Indication: CEREBROVASCULAR ACCIDENT PROPHYLAXIS
     Dosage: 5 MG, BID
     Route: 048

REACTIONS (10)
  - Encephalopathy [Unknown]
  - Acute respiratory failure [Unknown]
  - Ammonia increased [Unknown]
  - Upper gastrointestinal haemorrhage [Recovered/Resolved]
  - Prothrombin time prolonged [Unknown]
  - Candida infection [Unknown]
  - Gastritis [Unknown]
  - Haemorrhagic anaemia [Unknown]
  - Hepatic cirrhosis [Unknown]
  - Packed red blood cell transfusion [Unknown]

NARRATIVE: CASE EVENT DATE: 20161024
